FAERS Safety Report 7935376-1 (Version None)
Quarter: 2011Q4

REPORT INFORMATION
  Report Type: 
  Country: None (occurrence: None)
  Receive Date: 20111122
  Receipt Date: 20111118
  Transmission Date: 20120403
  Serious: Yes (Death, Hospitalization)
  Sender: FDA-Public Use
  Company Number: US-B.I. PHARMACEUTICALS,INC./RIDGEFIELD-2011-BP-20670BP

PATIENT
  Sex: Male
  Weight: 116.57 kg

DRUGS (13)
  1. JANTOVEN (WAYFARIN) [Concomitant]
     Dosage: 10 MG
     Dates: end: 20110628
  2. POTASSIUM CHLORIDE [Concomitant]
     Dosage: 10 MEQ
     Dates: start: 20080801
  3. GLIMEPIRIDE [Concomitant]
     Dosage: 8 MG
     Dates: start: 20080822
  4. LIPITOR [Concomitant]
     Dosage: 20 MG
     Dates: start: 20080801
  5. METFORMIN HCL [Concomitant]
     Dosage: 1500 MG
  6. LISINOPRIL [Concomitant]
     Dosage: 10 MG
     Dates: start: 20080801
  7. ONGLYZA [Concomitant]
     Dosage: 5 MG
  8. PRADAXA [Suspect]
     Dosage: 150 MG
     Dates: start: 20110601
  9. NIACIN [Concomitant]
     Dosage: 500 MG
  10. FISH OIL [Concomitant]
     Dosage: 200 MG
  11. TOPROL-XL [Concomitant]
     Dosage: 200 MG
  12. LUTEIN [Concomitant]
     Dosage: 20 MG
  13. LASIX [Concomitant]
     Dosage: 40 MG
     Dates: start: 20080801

REACTIONS (2)
  - PLANTAR FASCIITIS [None]
  - CEREBRAL HAEMORRHAGE [None]
